FAERS Safety Report 24840530 (Version 2)
Quarter: 2025Q1

REPORT INFORMATION
  Report Type: Spontaneous
  Country: PT (occurrence: PT)
  Receive Date: 20250114
  Receipt Date: 20250115
  Transmission Date: 20250408
  Serious: Yes (Other)
  Sender: MERCK
  Company Number: PT-009507513-2501PRT002931

PATIENT
  Age: 34 Year

DRUGS (3)
  1. PEMBROLIZUMAB [Suspect]
     Active Substance: PEMBROLIZUMAB
  2. FLUOROURACIL\LEUCOVORIN CALCIUM\OXALIPLATIN [Suspect]
     Active Substance: FLUOROURACIL\LEUCOVORIN CALCIUM\OXALIPLATIN
     Dates: start: 202403
  3. TRASTUZUMAB [Suspect]
     Active Substance: TRASTUZUMAB
     Dates: start: 202403

REACTIONS (2)
  - Neurotoxicity [Unknown]
  - Dysphagia [Unknown]

NARRATIVE: CASE EVENT DATE: 20240101
